FAERS Safety Report 12475088 (Version 2)
Quarter: 2016Q3

REPORT INFORMATION
  Report Type: Spontaneous
  Country: NL (occurrence: NL)
  Receive Date: 20160617
  Receipt Date: 20160713
  Transmission Date: 20161109
  Serious: Yes (Other)
  Sender: FDA-Public Use
  Company Number: NL-HORIZON-ACT-0145-2016

PATIENT
  Age: 3 Year
  Sex: Male

DRUGS (5)
  1. IMUKINE [Suspect]
     Active Substance: INTERFERON GAMMA-1B
     Indication: IMMUNODEFICIENCY
     Dosage: 50 ?G/M2 BODY SURFACE (3 IN 1 WK); DAILY INJECTIONS; THEN DOSE WAS REVERTED TO 3 TIMES A WEEK
     Route: 058
  2. VORICONAZOLE. [Concomitant]
     Active Substance: VORICONAZOLE
     Indication: CANDIDA INFECTION
  3. FLUCYTOSINE. [Concomitant]
     Active Substance: FLUCYTOSINE
     Indication: CANDIDA INFECTION
  4. MICAFUNGIN [Concomitant]
     Active Substance: MICAFUNGIN
     Indication: CANDIDA INFECTION
  5. LIPOSOMAL AMPHOTERICIN B [Concomitant]
     Active Substance: AMPHOTERICIN B
     Indication: CANDIDA INFECTION

REACTIONS (3)
  - Pericardial effusion [Recovered/Resolved]
  - Drug ineffective [Recovered/Resolved]
  - Device related infection [Unknown]
